FAERS Safety Report 15687314 (Version 2)
Quarter: 2019Q1

REPORT INFORMATION
  Report Type: Report from Study
  Country: None (occurrence: RO)
  Receive Date: 20181205
  Receipt Date: 20190219
  Transmission Date: 20190417
  Serious: Yes (Hospitalization, Other)
  Sender: FDA-Public Use
  Company Number: RO-ABBVIE-18K-135-2571671-00

PATIENT
  Age: 36 Year
  Sex: Female

DRUGS (5)
  1. CONTROLOC [Concomitant]
     Active Substance: PANTOPRAZOLE SODIUM
     Indication: PROPHYLAXIS
     Route: 048
     Dates: start: 201806
  2. HUMIRA [Suspect]
     Active Substance: ADALIMUMAB
     Indication: CROHN^S DISEASE
     Route: 058
     Dates: start: 20160615, end: 201808
  3. MEDROL [Concomitant]
     Active Substance: METHYLPREDNISOLONE
     Indication: CROHN^S DISEASE
     Route: 048
     Dates: start: 201806
  4. HUMIRA [Suspect]
     Active Substance: ADALIMUMAB
     Route: 058
     Dates: start: 201808
  5. TOTHEMA [Suspect]
     Active Substance: COPPER GLUCONATE\FERROUS GLUCONATE\MANGANESE GLUCONATE
     Indication: HAEMOGLOBIN DECREASED
     Route: 051
     Dates: start: 201806, end: 2018

REACTIONS (11)
  - Intestinal haemorrhage [Recovered/Resolved]
  - Diarrhoea [Recovered/Resolved]
  - Weight decreased [Recovering/Resolving]
  - Haemoglobin decreased [Recovered/Resolved]
  - Hernial eventration [Recovered/Resolved]
  - Post procedural infection [Recovered/Resolved]
  - Granuloma [Recovered/Resolved]
  - Stoma site infection [Recovering/Resolving]
  - Pruritus [Recovering/Resolving]
  - Pyoderma [Recovering/Resolving]
  - Nausea [Recovered/Resolved]

NARRATIVE: CASE EVENT DATE: 201707
